FAERS Safety Report 10441473 (Version 1)
Quarter: 2014Q3

REPORT INFORMATION
  Report Type: Not Available
  Country: NL (occurrence: NL)
  Receive Date: 20140909
  Receipt Date: 20140909
  Transmission Date: 20150326
  Serious: Yes (Hospitalization)
  Sender: FDA-Public Use
  Company Number: NL-MUNDIPHARMA DS AND PHARMACOVIGILANCE-GBR-2014-0021057

PATIENT
  Age: 45 Year
  Sex: Female
  Weight: 63 kg

DRUGS (5)
  1. CORTICORELIN (HUMAN) [Concomitant]
     Dosage: 1 DF, TID
     Dates: start: 2013
  2. DIAZEPAM. [Concomitant]
     Active Substance: DIAZEPAM
     Dosage: 5 MG, TID
     Route: 048
     Dates: start: 201310, end: 201403
  3. DICLOFENAC W/MISOPROSTOL [Concomitant]
     Dosage: 50/200 OTHER, TID
     Dates: start: 201310, end: 201403
  4. PARACETAMOL [Concomitant]
     Active Substance: ACETAMINOPHEN
     Dosage: 500 MG, QID
     Dates: start: 201310, end: 201403
  5. OXYCODONE HYDROCHLORIDE. [Suspect]
     Active Substance: OXYCODONE HYDROCHLORIDE
     Indication: HERNIA PAIN
     Dosage: 10 MG, BID
     Route: 048
     Dates: start: 201310, end: 201403

REACTIONS (1)
  - Vasculitis [Recovering/Resolving]

NARRATIVE: CASE EVENT DATE: 201403
